FAERS Safety Report 10920439 (Version 1)
Quarter: 2015Q1

REPORT INFORMATION
  Report Type: Spontaneous
  Country: US (occurrence: None)
  Receive Date: 20150313
  Receipt Date: 20150313
  Transmission Date: 20150721
  Serious: Yes (Disabling)
  Sender: FDA-Public Use
  Company Number: None

PATIENT
  Age: 75 Year
  Sex: Female
  Weight: 56.7 kg

DRUGS (12)
  1. METAMUCIL [Concomitant]
     Active Substance: PLANTAGO SEED
  2. BENADRYL [Concomitant]
     Active Substance: DIPHENHYDRAMINE HYDROCHLORIDE
  3. TOVIAZ [Suspect]
     Active Substance: FESOTERODINE FUMARATE
     Indication: PAIN
     Dosage: 1 PILL DAILY, I TOOK IN EVENING
     Route: 048
     Dates: start: 20141231, end: 20150119
  4. TOVIAZ [Suspect]
     Active Substance: FESOTERODINE FUMARATE
     Indication: MICTURITION URGENCY
     Dosage: 1 PILL DAILY, I TOOK IN EVENING
     Route: 048
     Dates: start: 20141231, end: 20150119
  5. TYLENOL [Concomitant]
     Active Substance: ACETAMINOPHEN
  6. ST JOSEPHS ASP [Concomitant]
  7. WARFARIN [Concomitant]
     Active Substance: WARFARIN
  8. GENTEAL EYE DROPS [Concomitant]
  9. NASOGEL SPRAY [Concomitant]
  10. TOVIAZ [Suspect]
     Active Substance: FESOTERODINE FUMARATE
     Indication: POLLAKIURIA
     Dosage: 1 PILL DAILY, I TOOK IN EVENING
     Route: 048
     Dates: start: 20141231, end: 20150119
  11. FIORICET [Concomitant]
     Active Substance: ACETAMINOPHEN\BUTALBITAL\CAFFEINE
  12. CITRACAL 400+D3 [Concomitant]

REACTIONS (8)
  - Dry mouth [None]
  - Discomfort [None]
  - Dysuria [None]
  - Drug ineffective [None]
  - Insomnia [None]
  - Pain [None]
  - Condition aggravated [None]
  - Pollakiuria [None]

NARRATIVE: CASE EVENT DATE: 20140131
